FAERS Safety Report 5487987-3 (Version None)
Quarter: 2007Q4

REPORT INFORMATION
  Report Type: 
  Country: None (occurrence: None)
  Receive Date: 20071017
  Receipt Date: 20071005
  Transmission Date: 20080405
  Serious: Yes (Hospitalization)
  Sender: FDA-Public Use
  Company Number: GB-AMGEN-US247334

PATIENT
  Sex: Male
  Weight: 60 kg

DRUGS (8)
  1. ENBREL [Suspect]
     Indication: RHEUMATOID ARTHRITIS
     Route: 058
     Dates: start: 20030601, end: 20070515
  2. METHOTREXATE [Concomitant]
     Dosage: UNKNOWN
  3. SIMVASTATIN [Concomitant]
     Dosage: UNKNOWN
  4. FOLIC ACID [Concomitant]
     Dosage: UNKNOWN
  5. OMEPRAZOLE [Concomitant]
     Dosage: UNKNOWN
  6. PARACETAMOL [Concomitant]
     Dosage: UNKNOWN
  7. SULFASALAZINE [Concomitant]
     Dosage: UNKNOWN
  8. ATENOLOL [Concomitant]
     Dosage: UNKNOWN

REACTIONS (5)
  - CONDITION AGGRAVATED [None]
  - COUGH [None]
  - INFLAMMATION [None]
  - NIGHT SWEATS [None]
  - WEIGHT DECREASED [None]
